FAERS Safety Report 23826907 (Version 1)
Quarter: 2024Q2

REPORT INFORMATION
  Report Type: Report from Study
  Country: US (occurrence: US)
  Receive Date: 20240507
  Receipt Date: 20240507
  Transmission Date: 20240716
  Serious: Yes (Other)
  Sender: FDA-Public Use
  Company Number: US-GILEAD-2024-0671762

PATIENT

DRUGS (1)
  1. BREXUCABTAGENE AUTOLEUCEL [Suspect]
     Active Substance: BREXUCABTAGENE AUTOLEUCEL
     Indication: Haematological malignancy
     Dosage: UNK (RECEIVED BETWEEN 01-AUG-2021 AND 17-NOV-2022)
     Route: 065

REACTIONS (1)
  - Cytomegalovirus infection reactivation [Unknown]
